FAERS Safety Report 9807264 (Version 1)
Quarter: 2014Q1

REPORT INFORMATION
  Report Type: Spontaneous
  Country: US (occurrence: US)
  Receive Date: 20140110
  Receipt Date: 20140110
  Transmission Date: 20141002
  Serious: No
  Sender: FDA-Public Use
  Company Number: US-BIOGENIDEC-2014BI002089

PATIENT
  Sex: Male

DRUGS (9)
  1. AVONEX [Suspect]
     Indication: MULTIPLE SCLEROSIS
     Route: 030
     Dates: start: 20120131
  2. ALEVE [Concomitant]
  3. AMPYRA [Concomitant]
  4. ASPIRIN [Concomitant]
  5. CORTISONE ACETATE [Concomitant]
  6. DIOVAN [Concomitant]
  7. LOVASTATIN [Concomitant]
  8. PAROXETINE HCL [Concomitant]
  9. PAXIL [Concomitant]

REACTIONS (1)
  - Influenza [Unknown]
